FAERS Safety Report 5181708-X (Version None)
Quarter: 2006Q4

REPORT INFORMATION
  Report Type: 
  Country: None (occurrence: None)
  Receive Date: 20061220
  Receipt Date: 20060228
  Transmission Date: 20070319
  Serious: Yes (Other)
  Sender: FDA-Public Use
  Company Number: US-GLAXOSMITHKLINE-A0595436A

PATIENT
  Age: 57 Year
  Sex: Male

DRUGS (1)
  1. COMMIT [Suspect]
     Dosage: 2MG SEE DOSAGE TEXT

REACTIONS (5)
  - DIZZINESS [None]
  - DRUG ABUSER [None]
  - DYSPEPSIA [None]
  - NAUSEA [None]
  - NICOTINE DEPENDENCE [None]
